FAERS Safety Report 12240643 (Version 3)
Quarter: 2016Q2

REPORT INFORMATION
  Report Type: Spontaneous
  Country: PL (occurrence: PL)
  Receive Date: 20160406
  Receipt Date: 20160517
  Transmission Date: 20160815
  Serious: Yes (Death, Other)
  Sender: FDA-Public Use
  Company Number: PL-ROCHE-1736599

PATIENT
  Sex: Female
  Weight: 70 kg

DRUGS (8)
  1. OXODIL [Concomitant]
     Active Substance: FORMOTEROL FUMARATE
     Route: 065
  2. VENTOLIN SOLUTION [Concomitant]
  3. BERODUAL INHALATION SOLUTION [Concomitant]
  4. XOLAIR [Suspect]
     Active Substance: OMALIZUMAB
     Indication: ASTHMA
     Route: 058
     Dates: start: 20130816
  5. PREDNISONE. [Concomitant]
     Active Substance: PREDNISONE
  6. FLIXOTIDE [Concomitant]
     Active Substance: FLUTICASONE PROPIONATE
     Route: 065
  7. XOLAIR [Suspect]
     Active Substance: OMALIZUMAB
     Route: 058
     Dates: end: 20140829
  8. ENCORTON [Concomitant]
     Active Substance: PREDNISONE

REACTIONS (3)
  - Pulmonary embolism [Fatal]
  - Lividity [Unknown]
  - Adrenal insufficiency [Unknown]
